FAERS Safety Report 9136486 (Version 1)
Quarter: 2013Q1

REPORT INFORMATION
  Report Type: Spontaneous
  Country: US (occurrence: US)
  Receive Date: 20130304
  Receipt Date: 20130304
  Transmission Date: 20140127
  Serious: Yes (Hospitalization)
  Sender: FDA-Public Use
  Company Number: US-ASTRAZENECA-1998AU06632

PATIENT
  Age: 77 Year
  Sex: Female

DRUGS (4)
  1. PRILOSEC [Suspect]
     Indication: DYSPEPSIA
     Route: 048
     Dates: start: 1997
  2. PRILOSEC [Suspect]
     Indication: DYSPEPSIA
     Route: 048
     Dates: start: 1997
  3. PRILOSEC [Suspect]
     Indication: GASTRIC DISORDER
     Route: 048
     Dates: start: 1997
  4. NEXIUM [Suspect]
     Route: 048

REACTIONS (2)
  - Meningioma benign [Recovered/Resolved]
  - Gastric disorder [Unknown]
